FAERS Safety Report 8791432 (Version 3)
Quarter: 2012Q4

REPORT INFORMATION
  Report Type: Spontaneous
  Country: US (occurrence: None)
  Receive Date: 20120912
  Receipt Date: 20121001
  Transmission Date: 20130627
  Serious: Yes (Hospitalization, Other)
  Sender: FDA-Public Use
  Company Number: JPI-P-024345

PATIENT
  Age: 49 Year
  Sex: Female

DRUGS (25)
  1. XYREM (500 MILLIGRAM/MILLILITERS, SOLUTION) (SODIUM OXYBATE) [Suspect]
     Indication: CATAPLEXY
     Route: 048
     Dates: start: 20120725, end: 20120813
  2. XYREM (500 MILLIGRAM/MILLILITERS, SOLUTION) (SODIUM OXYBATE) [Suspect]
     Indication: CATAPLEXY
     Route: 048
     Dates: start: 20120725, end: 20120813
  3. XYREM (500 MILLIGRAM/MILLILITERS, SOLUTION) (SODIUM OXYBATE) [Suspect]
     Indication: CATAPLEXY
     Route: 048
     Dates: start: 20120815
  4. XYREM (500 MILLIGRAM/MILLILITERS, SOLUTION) (SODIUM OXYBATE) [Suspect]
     Indication: CATAPLEXY
     Route: 048
     Dates: start: 20120823, end: 20120829
  5. XYREM (500 MILLIGRAM/MILLILITERS, SOLUTION) (SODIUM OXYBATE) [Suspect]
     Indication: CATAPLEXY
     Route: 048
     Dates: start: 20120915
  6. MELOXICAM [Suspect]
     Indication: DRUG USE FOR UNKNOWN INDICATION
  7. MELOXICAM [Suspect]
     Indication: DRUG USE FOR UNKNOWN INDICATION
  8. CLONAZEPAM [Suspect]
     Indication: DRUG USE FOR UNKNOWN INDICATION
  9. CLONAZEPAM [Suspect]
     Indication: DRUG USE FOR UNKNOWN INDICATION
  10. METHYLPHENIDATE [Suspect]
     Indication: DRUG USE FOR UNKNOWN INDICATION
  11. METHYLPHENIDATE [Suspect]
     Indication: DRUG USE FOR UNKNOWN INDICATION
  12. BACLOFEN [Suspect]
     Indication: DRUG USE FOR UNKNOWN INDICATION
  13. BACLOFEN [Suspect]
     Indication: DRUG USE FOR UNKNOWN INDICATION
  14. GABAPENTIN [Suspect]
     Indication: DRUG USE FOR UNKNOWN INDICATION
  15. GABAPENTIN [Suspect]
     Indication: DRUG USE FOR UNKNOWN INDICATION
  16. VITAMIN D3 [Suspect]
     Indication: DRUG USE FOR UNKNOWN INDICATION
  17. VITAMIN D3 [Suspect]
     Indication: DRUG USE FOR UNKNOWN INDICATION
  18. HYDROCODONE-ACETAMINOPHEN [Suspect]
     Indication: DRUG USE FOR UNKNOWN INDICATION
  19. ARIPIPRAZOLE [Suspect]
     Indication: BIPOLAR DISORDER
     Dates: end: 201207
  20. ARIPIPRAZOLE [Suspect]
     Indication: BIPOLAR DISORDER
     Dates: start: 201208
  21. DESVENLAFAXINE [Suspect]
     Indication: BIPOLAR DISORDER
  22. DESVENLAFAXINE [Suspect]
     Indication: BIPOLAR DISORDER
     Dosage: 33.3333 mg (100 mg, 1 in 3 D)
     Dates: end: 20120802
  23. DESVENLAFAXINE [Suspect]
     Indication: BIPOLAR DISORDER
     Dates: start: 201208
  24. SIMVASTATIN [Suspect]
     Indication: DRUG USE FOR UNKNOWN INDICATION
  25. SIMVASTATIN [Suspect]
     Indication: DRUG USE FOR UNKNOWN INDICATION

REACTIONS (16)
  - Depression [None]
  - Panic attack [None]
  - Aerophagia [None]
  - Dysphagia [None]
  - Eructation [None]
  - Sleep disorder [None]
  - Tremor [None]
  - Hyperhidrosis [None]
  - Fatigue [None]
  - Stress [None]
  - Decreased appetite [None]
  - Malaise [None]
  - Cholelithiasis [None]
  - Vitamin D decreased [None]
  - Drug ineffective [None]
  - Suicidal ideation [None]
